FAERS Safety Report 17662539 (Version 1)
Quarter: 2020Q2

REPORT INFORMATION
  Report Type: Spontaneous
  Country: CA (occurrence: CA)
  Receive Date: 20200413
  Receipt Date: 20200413
  Transmission Date: 20200713
  Serious: Yes (Other)
  Sender: FDA-Public Use
  Company Number: CA-SAMSUNG BIOEPIS-SB-2019-06187

PATIENT
  Age: 53 Year
  Sex: Male
  Weight: 135 kg

DRUGS (1)
  1. INFLIXIMAB [Suspect]
     Active Substance: INFLIXIMAB
     Indication: PSORIATIC ARTHROPATHY
     Route: 042

REACTIONS (17)
  - Therapeutic product effect incomplete [Unknown]
  - Pain in extremity [Unknown]
  - Weight increased [Unknown]
  - Off label use [Unknown]
  - Blood pressure fluctuation [Unknown]
  - Apnoea [Unknown]
  - Dysstasia [Unknown]
  - Headache [Unknown]
  - Weight decreased [Unknown]
  - Drug ineffective [Unknown]
  - Gait disturbance [Unknown]
  - Incorrect dose administered [Unknown]
  - Intentional product use issue [Unknown]
  - Product use issue [Unknown]
  - Pain [Unknown]
  - Arthralgia [Unknown]
  - Therapeutic response shortened [Unknown]
